FAERS Safety Report 6890256-8 (Version None)
Quarter: 2010Q3

REPORT INFORMATION
  Report Type: 
  Country: None (occurrence: None)
  Receive Date: 20100730
  Receipt Date: 20080917
  Transmission Date: 20110219
  Serious: No
  Sender: FDA-Public Use
  Company Number: US-PFIZER INC-2008078622

PATIENT
  Sex: Male

DRUGS (2)
  1. LIPITOR [Suspect]
  2. ANTIBIOTICS [Concomitant]
     Indication: INFECTION

REACTIONS (1)
  - LIVER FUNCTION TEST ABNORMAL [None]
